FAERS Safety Report 10120901 (Version 1)
Quarter: 2014Q2

REPORT INFORMATION
  Report Type: Spontaneous
  Country: IT (occurrence: IT)
  Receive Date: 20140425
  Receipt Date: 20140425
  Transmission Date: 20141212
  Serious: Yes (Hospitalization)
  Sender: FDA-Public Use
  Company Number: IT-TEVA-476795ISR

PATIENT
  Age: 83 Year
  Sex: Male

DRUGS (2)
  1. CLARITROMICINA [Suspect]
     Dosage: 500 MILLIGRAM DAILY;
     Route: 048
     Dates: start: 20130502, end: 20130509
  2. COUMADIN 5 MG [Interacting]
     Indication: THROMBOPHLEBITIS
     Dosage: 1 DOSAGE FORMS DAILY;
     Route: 048
     Dates: start: 20070101, end: 20130509

REACTIONS (3)
  - Drug interaction [Recovered/Resolved]
  - Haematuria [Recovered/Resolved]
  - Hypocoagulable state [Recovered/Resolved]
